FAERS Safety Report 4969583-7 (Version None)
Quarter: 2006Q2

REPORT INFORMATION
  Report Type: 
  Country: None (occurrence: None)
  Receive Date: 20060411
  Receipt Date: 20060403
  Transmission Date: 20061013
  Serious: Yes (Other)
  Sender: FDA-Public Use
  Company Number: PHNU2006DE01612

PATIENT
  Age: 57 Year
  Sex: Female

DRUGS (5)
  1. PROVAS COMP [Suspect]
     Indication: HYPERTENSION
     Dosage: 1 DF/D
     Route: 048
  2. ANDANTE [Suspect]
     Indication: HYPERTENSION
     Dosage: 6 MG/D
     Route: 048
  3. NIFEDIPINE [Suspect]
     Indication: HYPERTENSION
     Dosage: 40 MG/D
     Route: 048
  4. METOPROLOL - SLOW RELEASE [Concomitant]
     Indication: HYPERTENSION
     Dosage: 100 MG, BID
     Route: 048
  5. ESTRIFAM [Concomitant]
     Indication: MENOPAUSE
     Route: 048

REACTIONS (6)
  - ALANINE AMINOTRANSFERASE INCREASED [None]
  - ASPARTATE AMINOTRANSFERASE INCREASED [None]
  - BLOOD ALKALINE PHOSPHATASE INCREASED [None]
  - GAMMA-GLUTAMYLTRANSFERASE INCREASED [None]
  - INTERVERTEBRAL DISC OPERATION [None]
  - LIVER FUNCTION TEST ABNORMAL [None]
